FAERS Safety Report 5767291-6 (Version None)
Quarter: 2008Q2

REPORT INFORMATION
  Report Type: 
  Country: None (occurrence: None)
  Receive Date: 20080612
  Receipt Date: 20080602
  Transmission Date: 20081010
  Serious: Yes (Death, Hospitalization)
  Sender: FDA-Public Use
  Company Number: MX-ELI_LILLY_AND_COMPANY-MX200803000060

PATIENT
  Age: 85 Year
  Sex: Male

DRUGS (13)
  1. FORTEO [Suspect]
     Indication: SPINAL FRACTURE
     Dosage: 20 UG, DAILY (1/D)
     Route: 058
     Dates: start: 20080215, end: 20080226
  2. ASPIRIN [Concomitant]
     Indication: PROPHYLAXIS
     Dosage: 100 MG, EACH MORNING
     Route: 065
  3. ERANZ [Concomitant]
     Indication: MEMORY IMPAIRMENT
     Dosage: 5 MG, DAILY (1/D)
     Route: 065
  4. ATROVENT [Concomitant]
     Dosage: 2 UNK, EACH EVENING
     Route: 065
  5. ESOMEPRAZOLE MAGNESIUM [Concomitant]
     Dosage: 40 MG, EACH MORNING
     Route: 065
  6. ESOMEPRAZOLE MAGNESIUM [Concomitant]
     Dosage: 20 MG, EACH EVENING
     Route: 065
  7. LEXOTAN [Concomitant]
     Indication: SLEEP DISORDER
     Dosage: UNK UNK, EACH EVENING
     Route: 065
  8. ATIVAN [Concomitant]
     Dosage: UNK UNK, EACH EVENING
     Route: 065
  9. XATRAL OD [Concomitant]
     Dosage: 10 MG, EACH EVENING
     Route: 065
  10. KETOROLAC TROMETHAMINE [Concomitant]
     Indication: PAIN
     Dosage: UNK UNK, 2/D
     Route: 065
  11. TRAMADOL HCL [Concomitant]
     Indication: PAIN
     Dosage: UNK, UNKNOWN
     Route: 065
  12. MOTILIUM [Concomitant]
     Dosage: 10 MG, OTHER
     Route: 065
  13. DICAL [Concomitant]
     Dosage: UNK, UNKNOWN
     Route: 065

REACTIONS (3)
  - CONDITION AGGRAVATED [None]
  - HAEMATOCHEZIA [None]
  - PNEUMONIA [None]
